FAERS Safety Report 20488911 (Version 2)
Quarter: 2022Q2

REPORT INFORMATION
  Report Type: Report from Study
  Country: IT (occurrence: IT)
  Receive Date: 20220218
  Receipt Date: 20220409
  Transmission Date: 20220720
  Serious: Yes (Hospitalization)
  Sender: FDA-Public Use
  Company Number: None

PATIENT
  Age: 81 Year
  Sex: Female

DRUGS (1)
  1. RIVASTIGMINE [Suspect]
     Active Substance: RIVASTIGMINE
     Indication: Senile dementia
     Dosage: 6 MG,
     Route: 048
     Dates: start: 20220130, end: 20220130

REACTIONS (4)
  - Diarrhoea [Recovering/Resolving]
  - Blood cholinesterase decreased [Recovering/Resolving]
  - Vomiting [Recovering/Resolving]
  - Medication error [Recovering/Resolving]

NARRATIVE: CASE EVENT DATE: 20220130
